FAERS Safety Report 26049377 (Version 1)
Quarter: 2025Q4

REPORT INFORMATION
  Report Type: Spontaneous
  Country: US (occurrence: US)
  Receive Date: 20251115
  Receipt Date: 20251115
  Transmission Date: 20260117
  Serious: No
  Sender: SANOFI AVENTIS
  Company Number: US-SA-2025SA339136

PATIENT
  Sex: Female

DRUGS (18)
  1. DUPIXENT [Suspect]
     Active Substance: DUPILUMAB
     Indication: Rheumatoid arthritis
     Dosage: 300 MG, QOW
     Route: 058
  2. ALENDRONATE [Concomitant]
     Active Substance: ALENDRONATE SODIUM
  3. AZELASTINE [Concomitant]
     Active Substance: AZELASTINE
  4. CLINDAMYCIN [Concomitant]
     Active Substance: CLINDAMYCIN
  5. CLOBETASOL [Concomitant]
     Active Substance: CLOBETASOL
  6. FLUTICASONE [Concomitant]
     Active Substance: FLUTICASONE
  7. GABAPENTIN [Concomitant]
     Active Substance: GABAPENTIN
  8. HYDROCORTISONE [Concomitant]
     Active Substance: HYDROCORTISONE
  9. HYDROXYCHLOROQUINE [Concomitant]
     Active Substance: HYDROXYCHLOROQUINE
  10. LEVOTHYROXINE [Concomitant]
     Active Substance: LEVOTHYROXINE
  11. NORTRIPTYLINE [Concomitant]
     Active Substance: NORTRIPTYLINE
  12. OXYCODONE [Concomitant]
     Active Substance: OXYCODONE
  13. OZEMPIC [Concomitant]
     Active Substance: SEMAGLUTIDE
  14. PILOCARPINE [Concomitant]
     Active Substance: PILOCARPINE
  15. PIMECROLIMUS [Concomitant]
     Active Substance: PIMECROLIMUS
  16. SOTALOL HYDROCHLORIDE [Concomitant]
     Active Substance: SOTALOL HYDROCHLORIDE
  17. TRIAMCINOLONE [Concomitant]
     Active Substance: TRIAMCINOLONE
  18. VENLAFAXINE [Concomitant]
     Active Substance: VENLAFAXINE HYDROCHLORIDE

REACTIONS (2)
  - Pruritus [Not Recovered/Not Resolved]
  - Eczema [Not Recovered/Not Resolved]
